FAERS Safety Report 7331536-1 (Version None)
Quarter: 2011Q1

REPORT INFORMATION
  Report Type: 
  Country: None (occurrence: None)
  Receive Date: 20110304
  Receipt Date: 20110301
  Transmission Date: 20110831
  Serious: Yes (Hospitalization)
  Sender: FDA-Public Use
  Company Number: US-PFIZER INC-2011038396

PATIENT
  Sex: Male
  Weight: 178 kg

DRUGS (5)
  1. TEMSIROLIMUS [Suspect]
     Indication: COLON CANCER
     Dosage: 11.25 MG, WEEKLY
     Route: 042
     Dates: start: 20101206, end: 20110118
  2. MULTIVITAMIN ^LAPPE^ [Concomitant]
     Indication: SUPPLEMENTATION THERAPY
     Dosage: UNK
     Route: 048
     Dates: start: 20000101
  3. COUMADIN [Concomitant]
     Indication: DEEP VEIN THROMBOSIS
     Dosage: UNK
     Route: 048
     Dates: start: 19970101
  4. XELODA [Suspect]
     Indication: COLON CANCER
     Dosage: 3000 MG AM/2500 MG PM, 7 DAYS ON/7 DAYS OFF
     Route: 048
     Dates: start: 20101206, end: 20110123
  5. LEVOTHROID [Concomitant]
     Indication: HYPOTHYROIDISM
     Dosage: UNK
     Route: 048
     Dates: start: 20101206, end: 20110123

REACTIONS (1)
  - CONVULSION [None]
